FAERS Safety Report 24274145 (Version 1)
Quarter: 2024Q3

REPORT INFORMATION
  Report Type: Spontaneous
  Country: JP (occurrence: JP)
  Receive Date: 20240902
  Receipt Date: 20240902
  Transmission Date: 20241017
  Serious: Yes (Hospitalization, Other)
  Sender: ELI LILLY AND CO
  Company Number: JP-ELI_LILLY_AND_COMPANY-JP202408016155

PATIENT
  Age: 40 Year
  Sex: Female

DRUGS (3)
  1. LYUMJEV [Suspect]
     Active Substance: INSULIN LISPRO-AABC
     Indication: Type 1 diabetes mellitus
     Dosage: 8 INTERNATIONAL UNIT, TID
     Route: 058
  2. TRESIBA [Concomitant]
     Active Substance: INSULIN DEGLUDEC
     Indication: Type 1 diabetes mellitus
     Dosage: 17 INTERNATIONAL UNIT, DAILY
  3. ALPRAZOLAM [Concomitant]
     Active Substance: ALPRAZOLAM
     Indication: Somatic symptom disorder
     Dosage: 0.4 MG, DAILY

REACTIONS (3)
  - Suicide attempt [Unknown]
  - Hypoglycaemia [Recovered/Resolved]
  - Intentional overdose [Recovered/Resolved]
